FAERS Safety Report 6859264-7 (Version None)
Quarter: 2010Q3

REPORT INFORMATION
  Report Type: 
  Country: None (occurrence: None)
  Receive Date: 20100719
  Receipt Date: 20080416
  Transmission Date: 20110219
  Serious: No
  Sender: FDA-Public Use
  Company Number: US-PFIZER INC-2008019136

PATIENT
  Sex: Male
  Weight: 86.4 kg

DRUGS (1)
  1. CHANTIX [Suspect]
     Indication: SMOKING CESSATION THERAPY
     Route: 048
     Dates: start: 20080115, end: 20080201

REACTIONS (3)
  - INSOMNIA [None]
  - MOOD SWINGS [None]
  - NIGHT SWEATS [None]
